FAERS Safety Report 7626606-4 (Version None)
Quarter: 2011Q3

REPORT INFORMATION
  Report Type: 
  Country: None (occurrence: None)
  Receive Date: 20110721
  Receipt Date: 20110712
  Transmission Date: 20111222
  Serious: Yes (Hospitalization)
  Sender: FDA-Public Use
  Company Number: US-ROCHE-789398

PATIENT
  Age: 80 Year
  Sex: Female
  Weight: 67 kg

DRUGS (13)
  1. ASPIRIN [Concomitant]
  2. MAXZIDE [Concomitant]
  3. VITAMIN D [Concomitant]
  4. OMEGA III FATTY ACID [Concomitant]
  5. ACETAMINOPHEN [Concomitant]
  6. GLIPIZIDE [Concomitant]
  7. NITROGLYCERIN [Concomitant]
  8. PREDNISONE [Concomitant]
  9. VITAMIN B-12 [Concomitant]
  10. DYAZIDE [Concomitant]
  11. BEVACIZUMAB [Suspect]
     Dosage: IVBP OVER 30-90 MIN ON DAY 1,TOTAL DOSE ADMINISTERED THIS COURSE 975 MG.
     Route: 042
     Dates: start: 20101005, end: 20110610
  12. LETROZOLE [Suspect]
     Dosage: TOTAL COURSE DOSE : 42.5 MG
     Route: 048
     Dates: start: 20101005, end: 20110610
  13. LISINOPRIL [Concomitant]

REACTIONS (3)
  - INTERSTITIAL LUNG DISEASE [None]
  - FATIGUE [None]
  - HYPOXIA [None]
